FAERS Safety Report 9061433 (Version 1)
Quarter: 2013Q1

REPORT INFORMATION
  Report Type: Spontaneous
  Country: US (occurrence: None)
  Receive Date: 20130211
  Receipt Date: 20130211
  Transmission Date: 20140127
  Serious: No
  Sender: FDA-Public Use
  Company Number: None

PATIENT
  Age: 30 Year
  Sex: Female
  Weight: 114.76 kg

DRUGS (1)
  1. KEPPRA (LEVETIRACETAM) [Suspect]
     Indication: CONVULSION
     Dosage: 1AM, 1 5PM

REACTIONS (2)
  - Convulsion [None]
  - Product substitution issue [None]
